FAERS Safety Report 16354774 (Version 2)
Quarter: 2019Q2

REPORT INFORMATION
  Report Type: Spontaneous
  Country: US (occurrence: US)
  Receive Date: 20190524
  Receipt Date: 20190603
  Transmission Date: 20190711
  Serious: Yes (Hospitalization, Other)
  Sender: FDA-Public Use
  Company Number: US-GILEAD-2019-0409742

PATIENT
  Age: 33 Year
  Sex: Male

DRUGS (2)
  1. BACTRIM [Suspect]
     Active Substance: SULFAMETHOXAZOLE\TRIMETHOPRIM
     Indication: PRODUCT USED FOR UNKNOWN INDICATION
     Route: 065
  2. ATRIPLA [Suspect]
     Active Substance: EFAVIRENZ\EMTRICITABINE\TENOFOVIR DISOPROXIL FUMARATE
     Indication: HIV INFECTION
     Dosage: 1 DOSAGE FORM, QD
     Route: 065
     Dates: start: 2009, end: 2012

REACTIONS (8)
  - Cough [Unknown]
  - Treatment noncompliance [Unknown]
  - Drug resistance [Unknown]
  - Drug ineffective [Unknown]
  - Movement disorder [Unknown]
  - Back pain [Unknown]
  - Blood pressure increased [Unknown]
  - Blood pressure abnormal [Unknown]
